FAERS Safety Report 6888223-3 (Version None)
Quarter: 2010Q3

REPORT INFORMATION
  Report Type: 
  Country: None (occurrence: None)
  Receive Date: 20100730
  Receipt Date: 20100722
  Transmission Date: 20110219
  Serious: Yes (Hospitalization)
  Sender: FDA-Public Use
  Company Number: GXKR2010ES08158

PATIENT
  Age: 57 Year
  Sex: Male

DRUGS (3)
  1. IBUPROFEN (NGX) [Suspect]
     Dosage: UNK
     Route: 065
     Dates: start: 20061201
  2. METAMIZOLE (NGX) [Suspect]
     Route: 065
  3. ACETYLSALICYLIC ACID SRT [Suspect]
     Route: 065

REACTIONS (8)
  - ABDOMINAL PAIN UPPER [None]
  - ACUTE MYOCARDIAL INFARCTION [None]
  - ARTERIOSPASM CORONARY [None]
  - CHEST PAIN [None]
  - CORONARY ARTERIAL STENT INSERTION [None]
  - KOUNIS SYNDROME [None]
  - MALAISE [None]
  - PERIPHERAL ISCHAEMIA [None]
